FAERS Safety Report 24808402 (Version 1)
Quarter: 2025Q1

REPORT INFORMATION
  Report Type: Spontaneous
  Country: BD (occurrence: BD)
  Receive Date: 20250106
  Receipt Date: 20250106
  Transmission Date: 20250408
  Serious: Yes (Life-Threatening, Hospitalization, Other)
  Sender: SOLARIS PHARMA CORPORATION
  Company Number: BD-SPC-000541

PATIENT
  Age: 30 Year
  Sex: Male

DRUGS (12)
  1. METRONIDAZOLE [Suspect]
     Active Substance: METRONIDAZOLE
     Indication: Evidence based treatment
     Route: 065
     Dates: start: 20230908
  2. SODIUM BICARBONATE [Suspect]
     Active Substance: SODIUM BICARBONATE
     Indication: Evidence based treatment
     Route: 042
     Dates: start: 20230908
  3. MEROPENEM [Suspect]
     Active Substance: MEROPENEM
     Indication: Evidence based treatment
     Route: 065
     Dates: start: 20230908
  4. SODIUM BICARBONATE [Suspect]
     Active Substance: SODIUM BICARBONATE
     Indication: Cholera
     Route: 042
     Dates: start: 20230908
  5. SODIUM BICARBONATE [Suspect]
     Active Substance: SODIUM BICARBONATE
     Indication: Diarrhoea infectious
     Route: 042
     Dates: start: 20230908
  6. SODIUM BICARBONATE [Suspect]
     Active Substance: SODIUM BICARBONATE
     Indication: Bacteraemia
     Route: 042
     Dates: start: 20230908
  7. MEROPENEM [Suspect]
     Active Substance: MEROPENEM
     Indication: Cholera
     Route: 065
     Dates: start: 20230908
  8. MEROPENEM [Suspect]
     Active Substance: MEROPENEM
     Indication: Diarrhoea infectious
     Route: 065
     Dates: start: 20230908
  9. MEROPENEM [Suspect]
     Active Substance: MEROPENEM
     Indication: Bacteraemia
     Route: 065
     Dates: start: 20230908
  10. METRONIDAZOLE [Suspect]
     Active Substance: METRONIDAZOLE
     Indication: Cholera
     Route: 065
     Dates: start: 20230908
  11. METRONIDAZOLE [Suspect]
     Active Substance: METRONIDAZOLE
     Indication: Diarrhoea infectious
     Route: 065
     Dates: start: 20230908
  12. METRONIDAZOLE [Suspect]
     Active Substance: METRONIDAZOLE
     Indication: Bacteraemia
     Route: 065
     Dates: start: 20230908

REACTIONS (1)
  - Cardiac arrest [Unknown]

NARRATIVE: CASE EVENT DATE: 20230908
